FAERS Safety Report 9247462 (Version 1)
Quarter: 2013Q2

REPORT INFORMATION
  Report Type: Spontaneous
  Country: US (occurrence: US)
  Receive Date: 20130423
  Receipt Date: 20130423
  Transmission Date: 20140414
  Serious: No
  Sender: FDA-Public Use
  Company Number: US-BRISTOL-MYERS SQUIBB COMPANY-17267980

PATIENT
  Sex: Male

DRUGS (1)
  1. METAGLIP [Suspect]

REACTIONS (2)
  - Nausea [Unknown]
  - Blood glucose increased [Unknown]
